FAERS Safety Report 5248286-8 (Version None)
Quarter: 2007Q1

REPORT INFORMATION
  Report Type: 
  Country: None (occurrence: None)
  Receive Date: 20070227
  Receipt Date: 20061211
  Transmission Date: 20070707
  Serious: No
  Sender: FDA-Public Use
  Company Number: US-BRISTOL-MYERS SQUIBB COMPANY-13608807

PATIENT
  Age: 49 Year
  Sex: Male

DRUGS (6)
  1. GLUCOPHAGE [Suspect]
     Indication: DIABETES MELLITUS NON-INSULIN-DEPENDENT
     Dates: start: 20061020
  2. GLUCOPHAGE [Suspect]
     Dates: end: 20061019
  3. BYETTA [Suspect]
     Indication: DIABETES MELLITUS NON-INSULIN-DEPENDENT
     Route: 058
     Dates: start: 20061021
  4. BYETTA [Suspect]
     Route: 058
     Dates: start: 20061009, end: 20061020
  5. LANTUS [Concomitant]
  6. ATIVAN [Concomitant]

REACTIONS (8)
  - ANXIETY [None]
  - BLOOD GLUCOSE INCREASED [None]
  - CARDIAC FLUTTER [None]
  - FEELING JITTERY [None]
  - INCREASED APPETITE [None]
  - NAUSEA [None]
  - NERVOUSNESS [None]
  - STRESS [None]
